FAERS Safety Report 20136294 (Version 1)
Quarter: 2021Q4

REPORT INFORMATION
  Report Type: Spontaneous
  Country: IN (occurrence: IN)
  Receive Date: 20211201
  Receipt Date: 20211201
  Transmission Date: 20220303
  Serious: Yes (Other)
  Sender: FDA-Public Use
  Company Number: IN-PFIZER INC-2021133397

PATIENT
  Age: 59 Year
  Sex: Male

DRUGS (12)
  1. INLYTA [Suspect]
     Active Substance: AXITINIB
     Indication: Metastatic renal cell carcinoma
     Dosage: 5 MG, 2X/DAY
     Route: 048
     Dates: start: 20210125
  2. INLYTA [Suspect]
     Active Substance: AXITINIB
     Dosage: UNK (FOR 2 DAYS ONLY)
     Route: 048
     Dates: start: 20210428
  3. INLYTA [Suspect]
     Active Substance: AXITINIB
     Dosage: 5 MG, 2X/DAY
     Route: 048
     Dates: end: 20210702
  4. PREDNISOLONE [Concomitant]
     Active Substance: PREDNISOLONE
     Dosage: 60MG AFTER BREAKFAST AND 10MG AFTER DINNER
     Dates: start: 20210414
  5. PREDNISOLONE [Concomitant]
     Active Substance: PREDNISOLONE
     Dosage: 60 MG AFTER BREAKFAST
     Dates: start: 20210415
  6. PREDNISOLONE [Concomitant]
     Active Substance: PREDNISOLONE
     Dosage: 50 MG AFTER BREAKFAST
     Dates: start: 20210416
  7. PREDNISOLONE [Concomitant]
     Active Substance: PREDNISOLONE
     Dosage: 40 MG AFTER BREAKFAST
     Dates: start: 20210417
  8. PREDNISOLONE [Concomitant]
     Active Substance: PREDNISOLONE
     Dosage: 30 MG AFTER BREAKFAST
     Dates: start: 20210418
  9. PREDNISOLONE [Concomitant]
     Active Substance: PREDNISOLONE
     Dosage: 20 MG AFTER BREAKFAST
     Dates: start: 20210419
  10. PREDNISOLONE [Concomitant]
     Active Substance: PREDNISOLONE
     Dosage: 10 MG AFTER BREAKFAST
     Dates: start: 20210420
  11. PANTOPRAZOLE SODIUM [Concomitant]
     Active Substance: PANTOPRAZOLE SODIUM
     Dosage: 40 MG, 2X/DAY BEFORE FOOD
  12. SHELCAL OS [Concomitant]
     Dosage: 1 DF, 2X/DAY

REACTIONS (9)
  - Hepatotoxicity [Unknown]
  - Liver injury [Unknown]
  - Hepatic enzyme abnormal [Recovered/Resolved]
  - Drug intolerance [Unknown]
  - Pyrexia [Unknown]
  - Urinary tract infection [Unknown]
  - Liver function test abnormal [Recovered/Resolved]
  - Diarrhoea [Unknown]
  - Gingival bleeding [Unknown]

NARRATIVE: CASE EVENT DATE: 20210522
